FAERS Safety Report 14259996 (Version 2)
Quarter: 2018Q2

REPORT INFORMATION
  Report Type: Spontaneous
  Country: US (occurrence: US)
  Receive Date: 20171207
  Receipt Date: 20180508
  Transmission Date: 20180711
  Serious: No
  Sender: FDA-Public Use
  Company Number: US-VIFOR (INTERNATIONAL) INC.-VIT-2017-09818

PATIENT
  Age: 60 Year
  Sex: Female
  Weight: 206.57 kg

DRUGS (36)
  1. CLOPIDOGREL BISULFATE. [Concomitant]
     Active Substance: CLOPIDOGREL BISULFATE
  2. FOLIC ACID. [Concomitant]
     Active Substance: FOLIC ACID
  3. HYDROCODONE-ACETAMINOPHEN [Concomitant]
     Active Substance: ACETAMINOPHEN\HYDROCODONE
  4. IPRATROPIUM BROMIDE. [Concomitant]
     Active Substance: IPRATROPIUM BROMIDE
  5. LANTUS [Concomitant]
     Active Substance: INSULIN GLARGINE
  6. PLAVIX [Concomitant]
     Active Substance: CLOPIDOGREL BISULFATE
  7. ERGOCALCIFEROL. [Concomitant]
     Active Substance: ERGOCALCIFEROL
  8. HUMALOG [Concomitant]
     Active Substance: INSULIN LISPRO
  9. VELTASSA [Suspect]
     Active Substance: PATIROMER
     Route: 048
     Dates: start: 2017
  10. COREG [Concomitant]
     Active Substance: CARVEDILOL
  11. FUROSEMIDE. [Concomitant]
     Active Substance: FUROSEMIDE
  12. NYSTATIN. [Concomitant]
     Active Substance: NYSTATIN
  13. SERTRALINE HYDROCHLORIDE. [Concomitant]
     Active Substance: SERTRALINE HYDROCHLORIDE
  14. KEPPRA [Concomitant]
     Active Substance: LEVETIRACETAM
  15. PHENYTOIN SODIUM EXTENDED [Concomitant]
     Active Substance: PHENYTOIN SODIUM
  16. PROMETHAZINE HYDROCHLORIDE. [Concomitant]
     Active Substance: PROMETHAZINE HYDROCHLORIDE
  17. OMEPRAZOLE. [Concomitant]
     Active Substance: OMEPRAZOLE
  18. ROZEREM [Concomitant]
     Active Substance: RAMELTEON
  19. DILANTIN [Concomitant]
     Active Substance: PHENYTOIN
  20. DOXYCYCLINE HYCLATE. [Concomitant]
     Active Substance: DOXYCYCLINE HYCLATE
  21. LASIX [Concomitant]
     Active Substance: FUROSEMIDE
  22. NITRO-DUR [Concomitant]
     Active Substance: NITROGLYCERIN
  23. VIMPAT [Concomitant]
     Active Substance: LACOSAMIDE
  24. VELTASSA [Suspect]
     Active Substance: PATIROMER
     Indication: HYPERKALAEMIA
     Route: 048
     Dates: start: 20160505, end: 2017
  25. ALLOPURINOL. [Concomitant]
     Active Substance: ALLOPURINOL
  26. BESY-BENAZEPRIL HCL [Concomitant]
  27. ACETYLSALICYLIC ACID [Concomitant]
     Active Substance: ASPIRIN
  28. CARVEDILOL. [Concomitant]
     Active Substance: CARVEDILOL
  29. HYDRALAZINE HYDROCHLORIDE. [Concomitant]
     Active Substance: HYDRALAZINE HYDROCHLORIDE
  30. SINGULAIR [Concomitant]
     Active Substance: MONTELUKAST SODIUM
  31. AMLODIPINE [Concomitant]
     Active Substance: AMLODIPINE BESYLATE
  32. FLUTICASONE FUROATE~~VILANTEROL TRIFENATATE [Concomitant]
  33. FUROSEMIDE. [Concomitant]
     Active Substance: FUROSEMIDE
  34. ISOSORBIDE MONONITRATE ER [Concomitant]
     Active Substance: ISOSORBIDE MONONITRATE
  35. PHENYTEK [Concomitant]
     Active Substance: PHENYTOIN SODIUM
  36. SODIUM BICARBONATE. [Concomitant]
     Active Substance: SODIUM BICARBONATE

REACTIONS (4)
  - Gastroenteritis viral [Recovered/Resolved]
  - Drug dose omission [Unknown]
  - General physical condition abnormal [Recovered/Resolved]
  - Malaise [Recovered/Resolved]

NARRATIVE: CASE EVENT DATE: 201709
